FAERS Safety Report 21886015 (Version 1)
Quarter: 2023Q1

REPORT INFORMATION
  Report Type: Spontaneous
  Country: US (occurrence: None)
  Receive Date: 20230118
  Receipt Date: 20230118
  Transmission Date: 20230417
  Serious: Yes (Hospitalization)
  Sender: FDA-Public Use
  Company Number: None

PATIENT
  Age: 75 Year
  Sex: Male
  Weight: 84.82 kg

DRUGS (1)
  1. LETROZOLE [Suspect]
     Active Substance: LETROZOLE
     Indication: Glioblastoma multiforme
     Dosage: FREQUENCY : DAILY;?
     Route: 048
     Dates: start: 20210903, end: 20211224

REACTIONS (4)
  - Seizure [None]
  - Encephalopathy [None]
  - Malignant neoplasm progression [None]
  - Glioblastoma multiforme [None]

NARRATIVE: CASE EVENT DATE: 20211224
